FAERS Safety Report 10694310 (Version 2)
Quarter: 2015Q1

REPORT INFORMATION
  Report Type: Report from Study
  Country: CO (occurrence: CO)
  Receive Date: 20150107
  Receipt Date: 20150115
  Transmission Date: 20150721
  Serious: Yes (Hospitalization)
  Sender: FDA-Public Use
  Company Number: CO-AMGEN-COLSL2014102490

PATIENT
  Age: 46 Year
  Sex: Female
  Weight: 52 kg

DRUGS (1)
  1. VECTIBIX [Suspect]
     Active Substance: PANITUMUMAB
     Indication: COLORECTAL CANCER METASTATIC
     Dosage: 362 MG, EVERY 2 WEEKS
     Route: 042
     Dates: start: 20141118

REACTIONS (6)
  - Decreased appetite [Unknown]
  - Rash [Unknown]
  - Vomiting [Unknown]
  - Hospitalisation [Unknown]
  - Nausea [Unknown]
  - Mouth ulceration [Unknown]

NARRATIVE: CASE EVENT DATE: 20141229
